FAERS Safety Report 24155922 (Version 2)
Quarter: 2024Q3

REPORT INFORMATION
  Report Type: Spontaneous
  Country: JP (occurrence: None)
  Receive Date: 20240731
  Receipt Date: 20240906
  Transmission Date: 20241017
  Serious: Yes (Other)
  Sender: ASTRAZENECA
  Company Number: 2024A169981

PATIENT

DRUGS (2)
  1. ONDEXXYA [Suspect]
     Active Substance: ANDEXANET ALFA
     Indication: Haemorrhage
     Dosage: METHOD B: 800 MG IV AT A RATE OF 30 MG/MIN, FOLLOWED BY 960 MG IV AT A RATE OF 8 MG/MIN FOR 2 H17...
     Route: 041
     Dates: start: 20240723, end: 20240723
  2. ONDEXXYA [Suspect]
     Active Substance: ANDEXANET ALFA
     Indication: Subarachnoid haemorrhage
     Dosage: METHOD B: 800 MG IV AT A RATE OF 30 MG/MIN, FOLLOWED BY 960 MG IV AT A RATE OF 8 MG/MIN FOR 2 H17...
     Route: 041
     Dates: start: 20240723, end: 20240723

REACTIONS (1)
  - Cranial nerve disorder [Unknown]
